FAERS Safety Report 8964083 (Version 1)
Quarter: 2012Q4

REPORT INFORMATION
  Report Type: 
  Country: PE (occurrence: PE)
  Receive Date: 20121213
  Receipt Date: 20121213
  Transmission Date: 20130627
  Serious: Yes (Death)
  Sender: FDA-Public Use
  Company Number: PE-GLAXOSMITHKLINE-A1005141A

PATIENT
  Sex: Male

DRUGS (1)
  1. SERETIDE [Suspect]
     Indication: ASTHMA
     Dosage: 4PUFF Per day
     Route: 055
     Dates: start: 20100826

REACTIONS (2)
  - Cardiac failure [Fatal]
  - Neoplasm malignant [Unknown]
